FAERS Safety Report 19496123 (Version 1)
Quarter: 2021Q3

REPORT INFORMATION
  Report Type: Spontaneous
  Country: US (occurrence: US)
  Receive Date: 20210701
  Receipt Date: 20210701
  Transmission Date: 20211014
  Serious: Yes (Death)
  Sender: FDA-Public Use
  Company Number: None

PATIENT
  Age: 99 Year
  Sex: Female
  Weight: 58.5 kg

DRUGS (1)
  1. IMATINIB. [Suspect]
     Active Substance: IMATINIB MESYLATE
     Indication: ANAEMIA
     Route: 048
     Dates: start: 20170228, end: 20210628

REACTIONS (1)
  - Death [None]

NARRATIVE: CASE EVENT DATE: 20210628
